FAERS Safety Report 5143811-X (Version None)
Quarter: 2006Q4

REPORT INFORMATION
  Report Type: 
  Country: None (occurrence: None)
  Receive Date: 20061027
  Receipt Date: 20061017
  Transmission Date: 20070319
  Serious: Yes (Disabling, Other)
  Sender: FDA-Public Use
  Company Number: 2006127620

PATIENT
  Sex: Female

DRUGS (1)
  1. LISTERINE (MENTHOL, METHYL SALICYLATE, EUCALYPTOL, THYMOL) [Suspect]
     Indication: BREATH ODOUR
     Dosage: UNSPECIFIED DAILY, ORAL
     Route: 048
     Dates: start: 20040123

REACTIONS (14)
  - ANXIETY [None]
  - CONDITION AGGRAVATED [None]
  - CRYING [None]
  - DIZZINESS [None]
  - EPISTAXIS [None]
  - JOB DISSATISFACTION [None]
  - MALAISE [None]
  - MENORRHAGIA [None]
  - NERVOUSNESS [None]
  - PAIN [None]
  - RED BLOOD CELL SEDIMENTATION RATE INCREASED [None]
  - SKIN DISORDER [None]
  - THROMBOCYTOPENIC PURPURA [None]
  - TREMOR [None]
